FAERS Safety Report 17967234 (Version 2)
Quarter: 2020Q4

REPORT INFORMATION
  Report Type: Spontaneous
  Country: ES (occurrence: ES)
  Receive Date: 20200701
  Receipt Date: 20201006
  Transmission Date: 20210113
  Serious: No
  Sender: FDA-Public Use
  Company Number: US-LUPIN PHARMACEUTICALS INC.-2020-02220

PATIENT
  Age: 28 Year
  Sex: Female

DRUGS (12)
  1. METRONIDAZOLE. [Suspect]
     Active Substance: METRONIDAZOLE
     Dosage: 250 MILLIGRAM, BID
     Route: 048
  2. PREDNISONE. [Suspect]
     Active Substance: PREDNISONE
     Dosage: 10 MILLIGRAM, QD
     Route: 048
  3. METRONIDAZOLE. [Suspect]
     Active Substance: METRONIDAZOLE
     Indication: ROSACEA
     Dosage: UNK UNK, BID UNK (FORMULATION: GEL) 0.75 PERCENT
     Route: 065
  4. ERYTHROMYCIN. [Suspect]
     Active Substance: ERYTHROMYCIN
     Indication: ROSACEA
     Dosage: UNK UNK, BID
     Route: 061
  5. ERYTHROMYCIN. [Suspect]
     Active Substance: ERYTHROMYCIN
     Dosage: 1 GRAM, BID
     Route: 048
  6. PREDNISONE. [Suspect]
     Active Substance: PREDNISONE
     Indication: ROSACEA
     Dosage: 30 MILLIGRAM, QD
     Route: 048
  7. PERMETHRIN. [Suspect]
     Active Substance: PERMETHRIN
     Indication: ROSACEA
     Dosage: UNK UNK, BID
     Route: 061
  8. ZINC OXIDE. [Suspect]
     Active Substance: ZINC OXIDE
     Indication: ROSACEA
     Dosage: UNK UNK, BID
     Route: 061
  9. PREDNISONE. [Suspect]
     Active Substance: PREDNISONE
     Dosage: 20 MILLIGRAM, QD
     Route: 048
  10. PREDNISONE. [Suspect]
     Active Substance: PREDNISONE
     Dosage: 20 MILLIGRAM
     Route: 048
  11. MUPIROCIN. [Suspect]
     Active Substance: MUPIROCIN
     Indication: ROSACEA
     Dosage: UNK UNK, BID
     Route: 065
  12. AMOXICILLIN + CLAVULANIC ACID [Suspect]
     Active Substance: AMOXICILLIN\CLAVULANIC ACID
     Indication: ROSACEA
     Dosage: 1 DOSAGE FORM, TID, AMOXICILLIN 875 MG/ CLAVULANIC-ACID 125 MG
     Route: 048

REACTIONS (2)
  - Maternal exposure during pregnancy [Unknown]
  - Normal newborn [Unknown]
